FAERS Safety Report 15158098 (Version 1)
Quarter: 2018Q4

REPORT INFORMATION
  Report Type: Spontaneous
  Country: FR (occurrence: FR)
  Receive Date: 20180718
  Receipt Date: 20180718
  Transmission Date: 20190204
  Serious: No
  Sender: FDA-Public Use
  Company Number: FR-B. BRAUN MEDICAL INC.-2052294

PATIENT
  Age: 57 Year
  Sex: Male
  Weight: 87 kg

DRUGS (15)
  1. METRONIDAZOLE INJECTION USP (5 MG/ML) IN PAB? PLASTIC CONTAINER (NDA 0 [Suspect]
     Active Substance: METRONIDAZOLE
     Route: 042
     Dates: start: 20171114, end: 20171204
  2. GARDENAL [Concomitant]
     Active Substance: PHENOBARBITAL
  3. LOVENOX [Concomitant]
     Active Substance: ENOXAPARIN SODIUM
  4. AMLODIPINE [Concomitant]
     Active Substance: AMLODIPINE BESYLATE
  5. ASPIRINE PROTECT [Concomitant]
     Active Substance: ASPIRIN
  6. HUMALOG [Concomitant]
     Active Substance: INSULIN LISPRO
  7. PANTOPRAZOLE [Concomitant]
     Active Substance: PANTOPRAZOLE
  8. PARACETAMOL [Concomitant]
     Active Substance: ACETAMINOPHEN
  9. PHLOROGLUCINOL ARROW [Concomitant]
     Active Substance: PHLOROGLUCINOL
  10. LEVETIRACETAM MYLAN [Concomitant]
     Active Substance: LEVETIRACETAM
  11. LEVOTHYROX [Concomitant]
     Active Substance: LEVOTHYROXINE
  12. NEFOPAM MYLAN [Concomitant]
     Active Substance: NEFOPAM
  13. CEFOTAXIME [Suspect]
     Active Substance: CEFOTAXIME SODIUM
     Route: 042
     Dates: start: 20171114, end: 20171204
  14. PRIMPERAN [Concomitant]
     Active Substance: METOCLOPRAMIDE HYDROCHLORIDE
  15. VIMPAT [Concomitant]
     Active Substance: LACOSAMIDE

REACTIONS (1)
  - Eosinophilia [Recovered/Resolved]

NARRATIVE: CASE EVENT DATE: 20171124
